FAERS Safety Report 10064575 (Version 1)
Quarter: 2014Q2

REPORT INFORMATION
  Report Type: Spontaneous
  Country: US (occurrence: None)
  Receive Date: 20140407
  Receipt Date: 20140407
  Transmission Date: 20141212
  Serious: Yes (Disabling)
  Sender: FDA-Public Use
  Company Number: None

PATIENT
  Age: 64 Year
  Sex: Female
  Weight: 131.54 kg

DRUGS (1)
  1. LEVAQUIN [Suspect]
     Indication: PNEUMONIA
     Dosage: TAKEN BY MOUTH
     Dates: start: 20131107, end: 20140107

REACTIONS (4)
  - Arthralgia [None]
  - Arthralgia [None]
  - Gait disturbance [None]
  - Joint stiffness [None]
